FAERS Safety Report 25352288 (Version 2)
Quarter: 2025Q2

REPORT INFORMATION
  Report Type: Spontaneous
  Country: GB (occurrence: GB)
  Receive Date: 20250523
  Receipt Date: 20250609
  Transmission Date: 20250716
  Serious: Yes (Other)
  Sender: TAKEDA
  Company Number: GB-MHRA-MED-202505161223252510-HSLRF

PATIENT
  Age: 8 Year
  Sex: Male
  Weight: 22 kg

DRUGS (2)
  1. LISDEXAMFETAMINE DIMESYLATE [Suspect]
     Active Substance: LISDEXAMFETAMINE DIMESYLATE
     Indication: Product used for unknown indication
  2. METHYLPHENIDATE [Suspect]
     Active Substance: METHYLPHENIDATE
     Indication: Product used for unknown indication

REACTIONS (9)
  - Medication error [Unknown]
  - Sensory level abnormal [Unknown]
  - Loss of personal independence in daily activities [Unknown]
  - Urinary incontinence [Unknown]
  - Educational problem [Unknown]
  - Developmental regression [Unknown]
  - Foetal exposure during pregnancy [Unknown]
  - Soliloquy [Not Recovered/Not Resolved]
  - Communication disorder [Unknown]

NARRATIVE: CASE EVENT DATE: 20250309
